FAERS Safety Report 7262599-X (Version None)
Quarter: 2011Q1

REPORT INFORMATION
  Report Type: 
  Country: None (occurrence: None)
  Receive Date: 20110130
  Receipt Date: 20110126
  Transmission Date: 20110831
  Serious: Yes (Hospitalization)
  Sender: FDA-Public Use
  Company Number: DE-ABBOTT-11P-062-0696009-00

PATIENT
  Sex: Male
  Weight: 72 kg

DRUGS (2)
  1. HUMIRA [Suspect]
     Indication: RHEUMATOID ARTHRITIS
     Route: 058
     Dates: start: 20090925, end: 20100420
  2. HUMIRA [Suspect]
     Dates: start: 20100514

REACTIONS (5)
  - SINUSITIS [None]
  - RHINITIS [None]
  - FATIGUE [None]
  - DIARRHOEA [None]
  - INFECTION [None]
